FAERS Safety Report 15464128 (Version 1)
Quarter: 2018Q4

REPORT INFORMATION
  Report Type: Spontaneous
  Country: US (occurrence: US)
  Receive Date: 20181004
  Receipt Date: 20181004
  Transmission Date: 20190204
  Serious: No
  Sender: FDA-Public Use
  Company Number: US-TEVA-2018-US-961193

PATIENT
  Age: 2 Year
  Sex: Male

DRUGS (1)
  1. QVAR REDIHALER [Suspect]
     Active Substance: BECLOMETHASONE DIPROPIONATE
     Indication: ASTHMA
     Route: 065

REACTIONS (3)
  - Product administered to patient of inappropriate age [Unknown]
  - Asthma [Unknown]
  - Drug ineffective [Unknown]
